FAERS Safety Report 7647131-0 (Version None)
Quarter: 2011Q3

REPORT INFORMATION
  Report Type: 
  Country: None (occurrence: None)
  Receive Date: 20110801
  Receipt Date: 20110721
  Transmission Date: 20111222
  Serious: Yes (Other)
  Sender: FDA-Public Use
  Company Number: US-ROCHE-734452

PATIENT
  Sex: Female
  Weight: 68 kg

DRUGS (2)
  1. ACCUTANE [Suspect]
     Route: 065
     Dates: start: 19920101
  2. ACCUTANE [Suspect]
     Route: 065
     Dates: end: 19970101

REACTIONS (6)
  - DEPRESSION [None]
  - ORAL HERPES [None]
  - GASTROINTESTINAL DISORDER [None]
  - COLITIS ULCERATIVE [None]
  - CHAPPED LIPS [None]
  - GASTROINTESTINAL INJURY [None]
